FAERS Safety Report 6548518-X (Version None)
Quarter: 2010Q1

REPORT INFORMATION
  Report Type: 
  Country: None (occurrence: None)
  Receive Date: 20100124
  Receipt Date: 20090805
  Transmission Date: 20100710
  Serious: No
  Sender: FDA-Public Use
  Company Number: US-ALLERGAN-0910755US

PATIENT
  Sex: Female

DRUGS (6)
  1. RESTASIS [Suspect]
     Indication: DRY EYE
     Dosage: UNK, BID
     Route: 047
  2. LOTEMAX [Concomitant]
     Dosage: UNK, QID
     Route: 047
  3. LOTEMAX [Concomitant]
     Dosage: UNK, TID
     Route: 047
  4. LOTEMAX [Concomitant]
     Dosage: UNK, BID
     Route: 047
  5. IQUIX [Concomitant]
     Indication: INFECTION
     Route: 047
  6. TETRACYCLINE [Concomitant]
     Indication: INFECTION
     Route: 048

REACTIONS (3)
  - EYE IRRITATION [None]
  - GLOSSODYNIA [None]
  - TONGUE COATED [None]
